FAERS Safety Report 17342199 (Version 5)
Quarter: 2025Q3

REPORT INFORMATION
  Report Type: Spontaneous
  Country: US (occurrence: None)
  Receive Date: 20200129
  Receipt Date: 20250702
  Transmission Date: 20251020
  Serious: Yes (Other)
  Sender: INCYTE
  Company Number: US-INCYTE CORPORATION-2020IN000876

PATIENT
  Age: 78 Year

DRUGS (7)
  1. JAKAFI [Suspect]
     Active Substance: RUXOLITINIB
     Indication: Polycythaemia vera
     Dosage: 20 MILLIGRAM, BID
  2. JAKAFI [Suspect]
     Active Substance: RUXOLITINIB
  3. JAKAFI [Suspect]
     Active Substance: RUXOLITINIB
     Dosage: 25 MILLIGRAM, BID
  4. JAKAFI [Suspect]
     Active Substance: RUXOLITINIB
     Dosage: 10 MILLIGRAM, BID
  5. JAKAFI [Suspect]
     Active Substance: RUXOLITINIB
  6. JAKAFI [Suspect]
     Active Substance: RUXOLITINIB
  7. JAKAFI [Suspect]
     Active Substance: RUXOLITINIB

REACTIONS (6)
  - Breast cancer [Unknown]
  - Pollakiuria [Unknown]
  - Fall [Unknown]
  - Fatigue [Unknown]
  - Intentional product use issue [Unknown]
  - Dizziness [Unknown]
